FAERS Safety Report 12233388 (Version 1)
Quarter: 2016Q2

REPORT INFORMATION
  Report Type: Spontaneous
  Country: US (occurrence: US)
  Receive Date: 20160404
  Receipt Date: 20160404
  Transmission Date: 20160815
  Serious: Yes (Other)
  Sender: FDA-Public Use
  Company Number: US-BEH-2015057330

PATIENT
  Sex: Female
  Weight: 47 kg

DRUGS (19)
  1. HIZENTRA [Suspect]
     Active Substance: HUMAN IMMUNOGLOBULIN G
     Dosage: ??-NOV-2002
     Route: 058
  2. HIZENTRA [Suspect]
     Active Substance: HUMAN IMMUNOGLOBULIN G
     Route: 058
  3. FLUTICASONE PROPIONATE. [Concomitant]
     Active Substance: FLUTICASONE PROPIONATE
  4. AMPICILLIN TRIHYDRATE. [Concomitant]
     Active Substance: AMPICILLIN TRIHYDRATE
  5. SPIRIVA [Concomitant]
     Active Substance: TIOTROPIUM BROMIDE MONOHYDRATE
  6. EPIPEN [Concomitant]
     Active Substance: EPINEPHRINE
  7. SINGULAIR [Concomitant]
     Active Substance: MONTELUKAST SODIUM
  8. CRESTOR [Concomitant]
     Active Substance: ROSUVASTATIN CALCIUM
  9. BUDESONIDE. [Concomitant]
     Active Substance: BUDESONIDE
  10. MUCINEX DM ER [Concomitant]
  11. DIPHENHYDRAMINE. [Concomitant]
     Active Substance: DIPHENHYDRAMINE
  12. ALBUTEROL SULFATE. [Concomitant]
     Active Substance: ALBUTEROL SULFATE
  13. LIDOCAINE. [Concomitant]
     Active Substance: LIDOCAINE
  14. FLOVENT [Concomitant]
     Active Substance: FLUTICASONE PROPIONATE
  15. OMEPRAZOLE. [Concomitant]
     Active Substance: OMEPRAZOLE
  16. IRON [Concomitant]
     Active Substance: IRON
  17. BROVANA [Concomitant]
     Active Substance: ARFORMOTEROL TARTRATE
  18. MULTIVITAMINS WITH MINERALS [Concomitant]
     Active Substance: MINERALS\VITAMINS
  19. HIZENTRA [Suspect]
     Active Substance: HUMAN IMMUNOGLOBULIN G
     Indication: IMMUNODEFICIENCY COMMON VARIABLE
     Route: 058

REACTIONS (2)
  - Arthritis infective [Recovering/Resolving]
  - Bacterial infection [Unknown]
